FAERS Safety Report 8287564-5 (Version None)
Quarter: 2012Q2

REPORT INFORMATION
  Report Type: 
  Country: None (occurrence: None)
  Receive Date: 20120416
  Receipt Date: 20120402
  Transmission Date: 20120825
  Serious: Yes (Hospitalization, Other)
  Sender: FDA-Public Use
  Company Number: PHHY2010US84128

PATIENT
  Sex: Male

DRUGS (16)
  1. GLEEVEC [Suspect]
     Dosage: 100 MG, TID
     Route: 048
     Dates: start: 20101206
  2. ZIAC [Concomitant]
     Dosage: 2.5/6.25 MG DAILY
     Route: 048
  3. NITROGLYCERIN [Concomitant]
  4. EPIPEN [Concomitant]
  5. ASPIRIN [Concomitant]
     Dosage: 81 MG, DAILY
     Route: 048
  6. OSTEO BI-FLEX [Concomitant]
     Route: 048
  7. MAGNESIUM OXIDE [Concomitant]
     Dosage: 250 MG, UNK
     Route: 048
  8. FERROUS SULFATE TAB [Concomitant]
     Dosage: 325 MG, UNK
     Route: 048
  9. CARAFATE [Concomitant]
  10. RED BLOOD CELLS, CONCENTRATED [Concomitant]
     Dates: start: 20101018
  11. VALTURNA [Concomitant]
     Route: 048
  12. GLEEVEC [Suspect]
     Indication: CHRONIC MYELOID LEUKAEMIA
     Dosage: 400 MG, QD
     Dates: start: 20010601
  13. ASCORBIC ACID [Concomitant]
     Dosage: 500 MG, DAILY
     Route: 048
  14. HEPARIN [Concomitant]
     Route: 041
  15. GLEEVEC [Suspect]
     Dosage: 100 MG, QID
     Route: 048
     Dates: start: 20080616
  16. PLAVIX [Concomitant]
     Route: 048

REACTIONS (40)
  - IRON DEFICIENCY ANAEMIA [None]
  - NORMOCHROMIC NORMOCYTIC ANAEMIA [None]
  - GASTROOESOPHAGEAL REFLUX DISEASE [None]
  - CARDIOMYOPATHY [None]
  - GASTROINTESTINAL HAEMORRHAGE [None]
  - RENAL FAILURE CHRONIC [None]
  - BONE MARROW FAILURE [None]
  - FULL BLOOD COUNT DECREASED [None]
  - ANAEMIA MACROCYTIC [None]
  - PULMONARY ARTERIAL PRESSURE INCREASED [None]
  - GASTRIC ULCER [None]
  - HEART RATE DECREASED [None]
  - PERIORBITAL OEDEMA [None]
  - VENOUS OCCLUSION [None]
  - ANGINA UNSTABLE [None]
  - CHEST PAIN [None]
  - VENTRICULAR FIBRILLATION [None]
  - DEVICE OCCLUSION [None]
  - PALLOR [None]
  - BLOOD CREATININE INCREASED [None]
  - HELICOBACTER INFECTION [None]
  - DUODENAL ULCER [None]
  - PRURITUS [None]
  - RASH [None]
  - OSTEOARTHRITIS [None]
  - ACUTE MYOCARDIAL INFARCTION [None]
  - TRICUSPID VALVE INCOMPETENCE [None]
  - BLOOD UREA INCREASED [None]
  - RADIATION PROCTOPATHY [None]
  - BLOOD PRESSURE INADEQUATELY CONTROLLED [None]
  - HAEMOGLOBIN DECREASED [None]
  - TROPONIN INCREASED [None]
  - SINUS BRADYCARDIA [None]
  - CORONARY ARTERY DISEASE [None]
  - AORTIC STENOSIS [None]
  - BLOOD GLUCOSE INCREASED [None]
  - MITRAL VALVE INCOMPETENCE [None]
  - HIATUS HERNIA [None]
  - DIVERTICULUM [None]
  - HYPERTENSION [None]
